FAERS Safety Report 24742956 (Version 1)
Quarter: 2024Q4

REPORT INFORMATION
  Report Type: Spontaneous
  Country: JP (occurrence: JP)
  Receive Date: 20241217
  Receipt Date: 20241217
  Transmission Date: 20250114
  Serious: Yes (Other)
  Sender: MERCK
  Company Number: JP-MSD-M2024-28003

PATIENT
  Age: 8 Decade

DRUGS (5)
  1. KEYTRUDA [Suspect]
     Active Substance: PEMBROLIZUMAB
     Indication: Oesophageal carcinoma
     Dosage: 200 MILLIGRAM, Q3W
     Route: 041
     Dates: start: 20240709, end: 2024
  2. CISPLATIN [Suspect]
     Active Substance: CISPLATIN
     Indication: Oesophageal carcinoma
     Dosage: 80 MILLIGRAM/SQ. METER
     Route: 041
     Dates: start: 20240709, end: 2024
  3. CISPLATIN [Suspect]
     Active Substance: CISPLATIN
     Dosage: REDUCED BY 80%
     Route: 041
     Dates: start: 2024, end: 2024
  4. FLUOROURACIL [Suspect]
     Active Substance: FLUOROURACIL
     Indication: Oesophageal carcinoma
     Dosage: 800 MILLIGRAM/SQ. METER
     Route: 041
     Dates: start: 20240709, end: 2024
  5. FLUOROURACIL [Suspect]
     Active Substance: FLUOROURACIL
     Dosage: REDUCED BY 80%
     Route: 041
     Dates: start: 2024, end: 2024

REACTIONS (5)
  - Myelosuppression [Unknown]
  - Malignant neoplasm progression [Unknown]
  - Gastric perforation [Unknown]
  - Malaise [Unknown]
  - Secondary adrenocortical insufficiency [Unknown]

NARRATIVE: CASE EVENT DATE: 20240101
